FAERS Safety Report 5540654-X (Version None)
Quarter: 2007Q4

REPORT INFORMATION
  Report Type: 
  Country: None (occurrence: None)
  Receive Date: 20071129
  Receipt Date: 20070920
  Transmission Date: 20080405
  Serious: Yes (Hospitalization)
  Sender: FDA-Public Use
  Company Number: US200709004267

PATIENT
  Sex: Male

DRUGS (4)
  1. ZYPREXA [Suspect]
     Indication: SCHIZOPHRENIA
     Dosage: 40 MG, 2/D,
     Dates: start: 20070830
  2. SEROQUEL [Concomitant]
  3. BENZTROPINE MESYLATE [Concomitant]
  4. RISPERDAL [Concomitant]

REACTIONS (2)
  - OVERDOSE [None]
  - SCHIZOPHRENIA [None]
